FAERS Safety Report 14941331 (Version 1)
Quarter: 2018Q2

REPORT INFORMATION
  Report Type: Spontaneous
  Country: FR (occurrence: FR)
  Receive Date: 20180526
  Receipt Date: 20180526
  Transmission Date: 20180711
  Serious: Yes (Other)
  Sender: FDA-Public Use
  Company Number: FR-TEVA-2018-FR-896349

PATIENT
  Age: 77 Year
  Sex: Female
  Weight: 66 kg

DRUGS (5)
  1. TOMUDEX 2 MG, POUDRE POUR SOLUTION POUR PERFUSION [Concomitant]
     Indication: MALIGNANT PERITONEAL NEOPLASM
     Route: 040
     Dates: start: 20180208, end: 20180208
  2. OXALIPLATIN INJECTION 50MG/10 ML+100MG/20ML [Suspect]
     Active Substance: OXALIPLATIN
     Indication: MALIGNANT PERITONEAL NEOPLASM
     Route: 042
     Dates: start: 20180208
  3. APREPITANT. [Suspect]
     Active Substance: APREPITANT
     Indication: ANTIEMETIC SUPPORTIVE CARE
     Dosage: 125MG AVT CHEMO AND 80MG J1 AND J2
     Route: 048
     Dates: start: 20180208
  4. ONDANSETRON [Suspect]
     Active Substance: ONDANSETRON
     Indication: ANTIEMETIC SUPPORTIVE CARE
     Dosage: 2 DOSAGE FORMS DAILY; ?????DAY OF CHEMOTHERAPY
     Route: 048
     Dates: start: 20180208, end: 20180208
  5. PREDNISONE. [Suspect]
     Active Substance: PREDNISONE
     Indication: ANTIEMETIC SUPPORTIVE CARE
     Dosage: 4 DOSAGE FORMS DAILY; THE DAY OF CHEMO
     Route: 048
     Dates: start: 20180208

REACTIONS (3)
  - Feeling abnormal [Recovered/Resolved]
  - Hypotension [Recovered/Resolved]
  - Hot flush [Recovered/Resolved]

NARRATIVE: CASE EVENT DATE: 20180208
